FAERS Safety Report 8543995-7 (Version None)
Quarter: 2012Q3

REPORT INFORMATION
  Report Type: 
  Country: None (occurrence: None)
  Receive Date: 20120727
  Receipt Date: 20120717
  Transmission Date: 20120928
  Serious: Yes (Hospitalization)
  Sender: FDA-Public Use
  Company Number: US-BAYER-2011-112153

PATIENT
  Age: 40 Year
  Sex: Female
  Weight: 86 kg

DRUGS (5)
  1. YAZ [Suspect]
     Indication: PREMENSTRUAL SYNDROME
     Dosage: UNK
     Route: 048
     Dates: start: 20081101, end: 20091001
  2. ADVIL [Concomitant]
     Indication: HEADACHE
     Dosage: 800 MG, UNK
  3. VALTREX [Concomitant]
     Indication: ORAL HERPES
     Dosage: 500 MG, UNK
  4. SYNTHROID [Concomitant]
  5. TYLENOL [Concomitant]
     Indication: HEADACHE
     Dosage: 1000 MG, UNK

REACTIONS (6)
  - DEEP VEIN THROMBOSIS [None]
  - INJURY [None]
  - PAIN [None]
  - ANXIETY [None]
  - PULMONARY EMBOLISM [None]
  - EMOTIONAL DISTRESS [None]
